FAERS Safety Report 11071394 (Version 2)
Quarter: 2015Q2

REPORT INFORMATION
  Report Type: Report from Study
  Country: ES (occurrence: None)
  Receive Date: 20150424
  Receipt Date: 20150608
  Transmission Date: 20150821
  Serious: Yes (Other)
  Sender: FDA-Public Use
  Company Number: ES2015GSK050248

PATIENT

DRUGS (3)
  1. LAMIVUDINE  (LAMIVUDINE) [Suspect]
     Active Substance: LAMIVUDINE
  2. ABACAVIR (ABACAVIR SULPHATE) UNKNOWN [Suspect]
     Active Substance: ABACAVIR
  3. DOLUTEGRAVIR [Suspect]
     Active Substance: DOLUTEGRAVIR

REACTIONS (3)
  - Hepatotoxicity [None]
  - Rash [None]
  - Hypersensitivity [None]
